FAERS Safety Report 9624777 (Version 1)
Quarter: 2013Q4

REPORT INFORMATION
  Report Type: Report from Study
  Country: AU (occurrence: AU)
  Receive Date: 20131015
  Receipt Date: 20131015
  Transmission Date: 20140711
  Serious: Yes (Death)
  Sender: FDA-Public Use
  Company Number: AU-MYLANLABS-2013S1022356

PATIENT
  Age: 62 Year
  Sex: Female

DRUGS (4)
  1. ATORVASTATIN [Suspect]
     Dosage: 20MG
     Route: 065
  2. INEGY [Interacting]
     Dosage: 20/10
     Route: 065
  3. VERAPAMIL [Interacting]
     Dosage: 6 MONTHS PRIOR
     Route: 065
  4. FLUOXETINE [Interacting]
     Dosage: 40 MG/DAY
     Route: 065

REACTIONS (3)
  - Myositis [Fatal]
  - Drug interaction [Fatal]
  - Respiratory failure [Unknown]
